FAERS Safety Report 16790616 (Version 5)
Quarter: 2020Q1

REPORT INFORMATION
  Report Type: Spontaneous
  Country: PL (occurrence: PL)
  Receive Date: 20190910
  Receipt Date: 20200109
  Transmission Date: 20200409
  Serious: Yes (Death, Hospitalization, Disabling, Other)
  Sender: FDA-Public Use
  Company Number: PL-MYLANLABS-2019M1083727

PATIENT
  Age: 64 Year
  Sex: Female

DRUGS (14)
  1. OLANZAPINE. [Interacting]
     Active Substance: OLANZAPINE
     Indication: NAUSEA
     Dosage: UNK
     Route: 065
  2. MORPHINE [Interacting]
     Active Substance: MORPHINE
     Indication: NEURALGIA
     Dosage: UNK
  3. POTASSIUM [Suspect]
     Active Substance: POTASSIUM
     Indication: CERVIX CARCINOMA
     Dosage: UNK
  4. FUROSEMIDE. [Suspect]
     Active Substance: FUROSEMIDE
     Dosage: UNK
     Route: 065
  5. OLANZAPINE. [Suspect]
     Active Substance: OLANZAPINE
     Indication: SLEEP DISORDER
     Dosage: 10MG, QD (TAKEN BEFORE GOING TO SLEEP)
     Route: 065
  6. FLUCONAZOLE. [Interacting]
     Active Substance: FLUCONAZOLE
     Dosage: UNK
     Route: 048
  7. FUROSEMIDE. [Suspect]
     Active Substance: FUROSEMIDE
     Indication: CERVIX CARCINOMA
     Dosage: 60 MILLIGRAM, QD (PERIODICALLY, DOSE WAS INCREASED TO 60 MG/D)
     Route: 065
  8. DALTEPARIN SODIUM [Concomitant]
     Active Substance: DALTEPARIN SODIUM
     Dosage: UNK (HEPARIN LOW MOLECULAR WEIGHT)
  9. MORPHINE [Interacting]
     Active Substance: MORPHINE
     Indication: PAIN
     Dosage: 240 MILLIGRAM, QD
     Route: 048
  10. FLUCONAZOLE. [Interacting]
     Active Substance: FLUCONAZOLE
     Indication: FUNGAL INFECTION
     Dosage: 200 MILLIGRAM, QD
     Route: 048
  11. AMITRIPTYLINE [Interacting]
     Active Substance: AMITRIPTYLINE
     Indication: NEURALGIA
     Dosage: 150 MILLIGRAM, QD (50 MG, 3X/DAY)
  12. FLUCONAZOLE. [Interacting]
     Active Substance: FLUCONAZOLE
     Dosage: UNK
  13. HEPARIN [Suspect]
     Active Substance: HEPARIN SODIUM
     Indication: CERVIX CARCINOMA
     Dosage: UNK (AT A PROPHYLACTIC DOSE)
  14. OLANZAPINE. [Interacting]
     Active Substance: OLANZAPINE
     Indication: INITIAL INSOMNIA

REACTIONS (15)
  - Drug interaction [Fatal]
  - Pulmonary embolism [Fatal]
  - Haemoptysis [Fatal]
  - Confusional state [Fatal]
  - Dyspnoea [Fatal]
  - Cough [Fatal]
  - Cyanosis [Fatal]
  - Venous thrombosis [Fatal]
  - Oedema peripheral [Fatal]
  - Cardiac arrest [Fatal]
  - Chest pain [Fatal]
  - Cardio-respiratory arrest [Fatal]
  - Swelling [Fatal]
  - Somnolence [Fatal]
  - Nausea [Recovered/Resolved]
